FAERS Safety Report 17336090 (Version 2)
Quarter: 2020Q1

REPORT INFORMATION
  Report Type: Spontaneous
  Country: US (occurrence: US)
  Receive Date: 20200128
  Receipt Date: 20200131
  Transmission Date: 20200409
  Serious: Yes (Other)
  Sender: FDA-Public Use
  Company Number: US-PFIZER INC-2020037007

PATIENT
  Age: 55 Year
  Sex: Female

DRUGS (2)
  1. LYRICA [Suspect]
     Active Substance: PREGABALIN
     Dosage: 100 MG, 4X/DAY
  2. PREDNISONE. [Concomitant]
     Active Substance: PREDNISONE
     Dosage: 4 MG, UNK

REACTIONS (7)
  - Fibromyalgia [Unknown]
  - Oedema peripheral [Unknown]
  - Pain [Unknown]
  - Limb discomfort [Unknown]
  - Intentional dose omission [Unknown]
  - Fall [Unknown]
  - Dementia [Unknown]
